FAERS Safety Report 4779831-4 (Version None)
Quarter: 2005Q3

REPORT INFORMATION
  Report Type: 
  Country: None (occurrence: None)
  Receive Date: 20050914
  Receipt Date: 20050715
  Transmission Date: 20060218
  Serious: Yes (Hospitalization)
  Sender: FDA-Public Use
  Company Number: 163-20785-05070272

PATIENT
  Age: 67 Year
  Sex: Male

DRUGS (1)
  1. THALOMID [Suspect]
     Indication: MYELODYSPLASTIC SYNDROME
     Dosage: 50 MG, DAILY, ORAL
     Route: 048
     Dates: start: 20050604, end: 20050101

REACTIONS (4)
  - DEAFNESS [None]
  - EYE SWELLING [None]
  - NAUSEA [None]
  - OEDEMA [None]
